FAERS Safety Report 18556453 (Version 4)
Quarter: 2022Q3

REPORT INFORMATION
  Report Type: Spontaneous
  Country: VE (occurrence: VE)
  Receive Date: 20201128
  Receipt Date: 20220726
  Transmission Date: 20221027
  Serious: Yes (Hospitalization, Other)
  Sender: FDA-Public Use
  Company Number: VE-NOVARTISPH-NVSC2020VE314535

PATIENT
  Sex: Female

DRUGS (2)
  1. GLIVEC [Suspect]
     Active Substance: IMATINIB MESYLATE
     Indication: Chronic myeloid leukaemia
     Dosage: 400 MG (4 OF 100MG)
     Route: 065
  2. GLIVEC [Suspect]
     Active Substance: IMATINIB MESYLATE
     Dosage: 400 MG, QOD (4 X 100 MG)
     Route: 065

REACTIONS (12)
  - COVID-19 [Unknown]
  - Tonsillitis [Unknown]
  - Asthenia [Unknown]
  - Haemoglobin decreased [Unknown]
  - Acute promyelocytic leukaemia [Unknown]
  - Infection [Unknown]
  - Candida infection [Unknown]
  - White blood cell count abnormal [Unknown]
  - White blood cell count decreased [Unknown]
  - Hyperhidrosis [Unknown]
  - Stomatitis [Unknown]
  - Inappropriate schedule of product administration [Unknown]
